APPROVED DRUG PRODUCT: RITODRINE HYDROCHLORIDE
Active Ingredient: RITODRINE HYDROCHLORIDE
Strength: 10MG/ML
Dosage Form/Route: INJECTABLE;INJECTION
Application: A071618 | Product #001
Applicant: HOSPIRA INC
Approved: Feb 28, 1991 | RLD: No | RS: No | Type: DISCN